FAERS Safety Report 18242115 (Version 1)
Quarter: 2020Q3

REPORT INFORMATION
  Report Type: Spontaneous
  Country: NL (occurrence: FR)
  Receive Date: 20200908
  Receipt Date: 20200908
  Transmission Date: 20201103
  Serious: Yes (Hospitalization)
  Sender: FDA-Public Use
  Company Number: FR-FRESENIUS KABI-FK202008997

PATIENT
  Age: 36 Year
  Sex: Female

DRUGS (3)
  1. PROMEGESTONE [Concomitant]
     Active Substance: PROMEGESTONE
  2. LACTATED RINGERS SOLUTION [Suspect]
     Active Substance: CALCIUM CHLORIDE\POTASSIUM CHLORIDE\SODIUM CHLORIDE\SODIUM LACTATE
     Indication: UTERINE IRRIGATION
     Dosage: UNK
     Route: 015
     Dates: start: 20200730
  3. FERROUS SULFATE. [Concomitant]
     Active Substance: FERROUS SULFATE

REACTIONS (3)
  - Hypersensitivity [Recovered/Resolved]
  - Product appearance confusion [Recovered/Resolved]
  - Wrong product administered [Recovered/Resolved]

NARRATIVE: CASE EVENT DATE: 20200730
